FAERS Safety Report 9787997 (Version 1)
Quarter: 2013Q4

REPORT INFORMATION
  Report Type: Spontaneous
  Country: US (occurrence: None)
  Receive Date: 20131227
  Receipt Date: 20131227
  Transmission Date: 20140711
  Serious: No
  Sender: FDA-Public Use
  Company Number: None

PATIENT
  Age: 38 Year
  Sex: Female
  Weight: 68.49 kg

DRUGS (1)
  1. SULFAMETHOXAZOLE TMP DS N/A N/A [Suspect]
     Indication: KIDNEY INFECTION
     Dosage: 1 PILL  TWICE DAILY  TAKEN BY MOUTH
     Route: 048
     Dates: start: 20131220, end: 20131225

REACTIONS (1)
  - Drug hypersensitivity [None]
